FAERS Safety Report 19350241 (Version 1)
Quarter: 2021Q2

REPORT INFORMATION
  Report Type: Spontaneous
  Country: US (occurrence: US)
  Receive Date: 20210529
  Receipt Date: 20210529
  Transmission Date: 20210717
  Serious: Yes (Disabling)
  Sender: FDA-Public Use
  Company Number: None

PATIENT
  Age: 29 Year
  Sex: Female

DRUGS (1)
  1. BETAMETHASONE DIPROPIONATE 0.05 [Suspect]
     Active Substance: BETAMETHASONE DIPROPIONATE

REACTIONS (2)
  - Erythema [None]
  - Steroid withdrawal syndrome [None]

NARRATIVE: CASE EVENT DATE: 20210130
